FAERS Safety Report 4533831-8 (Version None)
Quarter: 2004Q4

REPORT INFORMATION
  Report Type: 
  Country: None (occurrence: None)
  Receive Date: 20041221
  Receipt Date: 20041215
  Transmission Date: 20050328
  Serious: Yes (Life-Threatening, Hospitalization, Disabling)
  Sender: FDA-Public Use
  Company Number: US-MERCK-0412USA01944

PATIENT
  Age: 60 Year
  Sex: Male

DRUGS (7)
  1. VIOXX [Suspect]
     Indication: ARTHRITIS
     Route: 048
     Dates: start: 20030401, end: 20040930
  2. COMBIVENT [Concomitant]
     Route: 065
  3. THIORIDAZINE [Concomitant]
     Route: 065
  4. MELLARIL [Concomitant]
     Route: 065
  5. VASOTEC [Concomitant]
     Route: 065
  6. LORCET-HD [Concomitant]
     Route: 065
  7. DOXYCYCLINE HYCLATE [Concomitant]
     Route: 065

REACTIONS (1)
  - MYOCARDIAL INFARCTION [None]
